FAERS Safety Report 5935994-6 (Version None)
Quarter: 2008Q4

REPORT INFORMATION
  Report Type: 
  Country: None (occurrence: None)
  Receive Date: 20081030
  Receipt Date: 20081023
  Transmission Date: 20090506
  Serious: Yes (Disabling)
  Sender: FDA-Public Use
  Company Number: US-ASTRAZENECA-2008UW23655

PATIENT
  Sex: Female

DRUGS (2)
  1. CRESTOR [Suspect]
     Indication: BLOOD CHOLESTEROL INCREASED
     Route: 048
     Dates: start: 20060101, end: 20070101
  2. CRESTOR [Suspect]
     Dosage: 1/2 OF A 10 MG TABLET
     Route: 048
     Dates: start: 20070101, end: 20081020

REACTIONS (7)
  - ANOREXIA [None]
  - GRIP STRENGTH DECREASED [None]
  - INSOMNIA [None]
  - MUSCULOSKELETAL PAIN [None]
  - NERVOUSNESS [None]
  - PAIN IN EXTREMITY [None]
  - WEIGHT DECREASED [None]
